FAERS Safety Report 10506998 (Version 1)
Quarter: 2014Q3

REPORT INFORMATION
  Report Type: Spontaneous
  Country: US (occurrence: None)
  Receive Date: 20140915
  Receipt Date: 20140915
  Transmission Date: 20150326
  Serious: Yes (Other)
  Sender: FDA-Public Use
  Company Number: 2014-US-004756

PATIENT
  Age: 24 Year
  Sex: Male

DRUGS (2)
  1. XYREM [Suspect]
     Active Substance: SODIUM OXYBATE
     Indication: CATAPLEXY
     Route: 048
     Dates: start: 201401, end: 2014
  2. XYREM [Suspect]
     Active Substance: SODIUM OXYBATE
     Indication: NARCOLEPSY
     Route: 048
     Dates: start: 201401, end: 2014

REACTIONS (9)
  - Sleep apnoea syndrome [None]
  - Glossodynia [None]
  - Throat irritation [None]
  - Feeling abnormal [None]
  - Toothache [None]
  - Dry throat [None]
  - Glossitis [None]
  - Dyspnoea [None]
  - Dental care [None]

NARRATIVE: CASE EVENT DATE: 20140415
